FAERS Safety Report 23188671 (Version 2)
Quarter: 2023Q4

REPORT INFORMATION
  Report Type: Spontaneous
  Country: US (occurrence: US)
  Receive Date: 20231115
  Receipt Date: 20231120
  Transmission Date: 20240110
  Serious: Yes (Death, Other)
  Sender: FDA-Public Use
  Company Number: US-KARYOPHARM-2023KPT002178

PATIENT

DRUGS (2)
  1. XPOVIO [Suspect]
     Active Substance: SELINEXOR
     Indication: Plasma cell myeloma
     Dosage: 100 MG, ONCE WEEKLY
     Route: 048
     Dates: start: 20231102, end: 20231114
  2. DARZALEX [Concomitant]
     Active Substance: DARATUMUMAB

REACTIONS (7)
  - Death [Fatal]
  - Haemoglobin decreased [Unknown]
  - Abnormal dreams [Unknown]
  - Diarrhoea [Unknown]
  - Asthenia [Unknown]
  - Vomiting [Unknown]
  - Nausea [Unknown]

NARRATIVE: CASE EVENT DATE: 20230101
